FAERS Safety Report 8398633-3 (Version None)
Quarter: 2012Q2

REPORT INFORMATION
  Report Type: 
  Country: None (occurrence: None)
  Receive Date: 20120531
  Receipt Date: 20120522
  Transmission Date: 20120825
  Serious: Yes (Other)
  Sender: FDA-Public Use
  Company Number: ZA-ASTRAZENECA-2012SE32856

PATIENT
  Age: 30 Year
  Sex: Female

DRUGS (2)
  1. LIDOCAINE W/ EPINEPHRINE [Suspect]
     Indication: LOCAL ANAESTHESIA
     Dosage: 1:100,000 ADRENALIN
     Route: 053
  2. CIPROFLOXACIN [Concomitant]
     Route: 061

REACTIONS (3)
  - MACULAR ISCHAEMIA [None]
  - BLINDNESS UNILATERAL [None]
  - RETINAL ARTERY OCCLUSION [None]
